FAERS Safety Report 22861946 (Version 4)
Quarter: 2024Q1

REPORT INFORMATION
  Report Type: Spontaneous
  Country: US (occurrence: US)
  Receive Date: 20230824
  Receipt Date: 20240223
  Transmission Date: 20240410
  Serious: No
  Sender: FDA-Public Use
  Company Number: US-PFIZER INC-PV202300144278

PATIENT
  Age: 76 Year
  Sex: Male

DRUGS (1)
  1. CARBOPLATIN [Suspect]
     Active Substance: CARBOPLATIN
     Dosage: UNK

REACTIONS (5)
  - Drug hypersensitivity [Unknown]
  - Urticaria [Unknown]
  - Dyspnoea [Unknown]
  - Rash [Unknown]
  - Asthma [Unknown]
